FAERS Safety Report 17142691 (Version 2)
Quarter: 2019Q4

REPORT INFORMATION
  Report Type: Spontaneous
  Country: US (occurrence: US)
  Receive Date: 20191211
  Receipt Date: 20191213
  Transmission Date: 20200122
  Serious: Yes (Other)
  Sender: FDA-Public Use
  Company Number: US-PFIZER INC-2019534629

PATIENT
  Age: 62 Year
  Sex: Male
  Weight: 82 kg

DRUGS (1)
  1. BOSULIF [Suspect]
     Active Substance: BOSUTINIB MONOHYDRATE
     Indication: CHRONIC MYELOID LEUKAEMIA
     Dosage: 400 MG, UNK

REACTIONS (4)
  - Diabetes mellitus [Unknown]
  - Fatigue [Unknown]
  - Malaise [Unknown]
  - Weight decreased [Unknown]
